FAERS Safety Report 14290395 (Version 1)
Quarter: 2017Q4

REPORT INFORMATION
  Report Type: Report from Study
  Country: None (occurrence: BR)
  Receive Date: 20171215
  Receipt Date: 20171215
  Transmission Date: 20180321
  Serious: Yes (Other)
  Sender: FDA-Public Use
  Company Number: BR-ABBVIE-16P-020-1723171-00

PATIENT
  Age: 85 Year
  Sex: Female
  Weight: 52.5 kg

DRUGS (15)
  1. BONVIVA [Concomitant]
     Active Substance: IBANDRONATE SODIUM
     Indication: PRODUCT USED FOR UNKNOWN INDICATION
     Route: 065
  2. ALENDRONATE SODIUM. [Suspect]
     Active Substance: ALENDRONATE SODIUM
     Route: 065
     Dates: start: 2001, end: 2011
  3. ATENOLOL. [Concomitant]
     Active Substance: ATENOLOL
     Indication: BLOOD PRESSURE MEASUREMENT
     Dosage: DAILY DOSE:25MG;MORNING/NIGHT
     Route: 065
  4. SYNTHROID [Suspect]
     Active Substance: LEVOTHYROXINE SODIUM
     Indication: THYROIDECTOMY
     Dosage: 50 MCG; IN THE MORNING (FASTING)
     Route: 048
  5. TRAVATAN [Concomitant]
     Active Substance: TRAVOPROST
     Indication: BONE DECALCIFICATION
     Route: 065
     Dates: start: 2011
  6. ATENOLOL. [Concomitant]
     Active Substance: ATENOLOL
     Dosage: DAILY DOSE:25 MG;1 IN MORNING AND 1 IN EVENING;FREQ TEXT:WHEN THE BLOOD PRESSURE IS HIGH
  7. LIVALO [Concomitant]
     Active Substance: PITAVASTATIN CALCIUM
     Indication: BONE DISORDER
     Dosage: DAILY DOSE:1 TABLET;10 AM
     Route: 065
     Dates: start: 2011
  8. TRAVATAN [Concomitant]
     Active Substance: TRAVOPROST
     Indication: BONE DISORDER
  9. TYLENOL [Concomitant]
     Active Substance: ACETAMINOPHEN
     Indication: NASOPHARYNGITIS
     Dosage: DAILY DOSE:1 TABLET; MORNING AND NIGHT
     Route: 065
     Dates: start: 2011
  10. SYNTHROID [Suspect]
     Active Substance: LEVOTHYROXINE SODIUM
     Route: 048
  11. ALENDRONATE SODIUM. [Suspect]
     Active Substance: ALENDRONATE SODIUM
     Indication: MENOPAUSE
     Route: 065
  12. ALENDRONATE SODIUM. [Suspect]
     Active Substance: ALENDRONATE SODIUM
     Route: 065
  13. ALENDRONATE SODIUM. [Suspect]
     Active Substance: ALENDRONATE SODIUM
     Indication: BONE DISORDER
     Route: 065
  14. LEVOID [Concomitant]
     Active Substance: LEVOTHYROXINE
     Indication: THYROID DISORDER
     Route: 065
     Dates: start: 1988, end: 2006
  15. DOSS [Concomitant]
     Active Substance: DOCUSATE SODIUM
     Indication: BONE DISORDER
     Dosage: DAILY DOSE:2 TABLETS;AFTER LUNCH
     Route: 065
     Dates: start: 2011

REACTIONS (7)
  - Fracture nonunion [Not Recovered/Not Resolved]
  - Blood calcium decreased [Unknown]
  - Headache [Recovered/Resolved]
  - Bone disorder [Recovering/Resolving]
  - Nasopharyngitis [Recovered/Resolved]
  - Hypertension [Recovered/Resolved]
  - Femur fracture [Not Recovered/Not Resolved]

NARRATIVE: CASE EVENT DATE: 20160818
